FAERS Safety Report 7693273-3 (Version None)
Quarter: 2011Q3

REPORT INFORMATION
  Report Type: 
  Country: None (occurrence: None)
  Receive Date: 20110819
  Receipt Date: 20110805
  Transmission Date: 20111222
  Serious: Yes (Other)
  Sender: FDA-Public Use
  Company Number: PHHY2011BR71391

PATIENT
  Sex: Female

DRUGS (3)
  1. LANCORDE [Concomitant]
     Dosage: 20 MG, UNK
  2. DIOVAN [Suspect]
     Dosage: 320 MG, UNK
  3. SISTRAQUE [Concomitant]
     Dosage: 20 MG, UNK

REACTIONS (4)
  - OSTEOARTHRITIS [None]
  - HEADACHE [None]
  - HYPERTENSION [None]
  - NECK PAIN [None]
